FAERS Safety Report 25683087 (Version 1)
Quarter: 2025Q3

REPORT INFORMATION
  Report Type: Spontaneous
  Country: EG (occurrence: EG)
  Receive Date: 20250814
  Receipt Date: 20250814
  Transmission Date: 20251020
  Serious: Yes (Hospitalization)
  Sender: NOVARTIS
  Company Number: EG-002147023-NVSC2025EG126496

PATIENT
  Age: 65 Year
  Sex: Female

DRUGS (7)
  1. TRILEPTAL [Suspect]
     Active Substance: OXCARBAZEPINE
     Indication: Product used for unknown indication
     Route: 048
  2. Mirtimash [Concomitant]
     Indication: Product used for unknown indication
     Dosage: 30 MG, QD
     Route: 048
  3. Spiraquet [Concomitant]
     Indication: Product used for unknown indication
     Dosage: 12.5 MG, QD (HALF TABLET OF 25 MILLIGRAM) IN EVENING
     Route: 048
  4. Pristimood [Concomitant]
     Indication: Product used for unknown indication
     Route: 048
  5. Neuroglopentin [Concomitant]
     Indication: Product used for unknown indication
     Dosage: 300 MG, QD
     Route: 048
  6. Restolam [Concomitant]
     Indication: Product used for unknown indication
     Dosage: 0.5 MG, QD (HALF TABLET)
     Route: 048
  7. MIXTARD HUMAN 70/30 [Concomitant]
     Active Substance: INSULIN HUMAN
     Indication: Product used for unknown indication
     Route: 065

REACTIONS (4)
  - Facial asymmetry [Recovered/Resolved with Sequelae]
  - Dysarthria [Recovered/Resolved with Sequelae]
  - Brain stem infarction [Recovered/Resolved with Sequelae]
  - Dysphagia [Recovered/Resolved with Sequelae]

NARRATIVE: CASE EVENT DATE: 20250712
